FAERS Safety Report 9827025 (Version 1)
Quarter: 2014Q1

REPORT INFORMATION
  Report Type: Spontaneous
  Country: US (occurrence: US)
  Receive Date: 20140117
  Receipt Date: 20140117
  Transmission Date: 20141002
  Serious: No
  Sender: FDA-Public Use
  Company Number: US-GLAXOSMITHKLINE-A1026994A

PATIENT
  Age: 51 Year
  Sex: Male

DRUGS (4)
  1. PROMACTA [Suspect]
     Indication: ACUTE HEPATITIS C
     Dosage: 25MG PER DAY
     Route: 048
     Dates: start: 20130514
  2. INCIVEK [Concomitant]
  3. RIBAVIRIN [Concomitant]
  4. PEGASYS [Concomitant]

REACTIONS (3)
  - Abdominal pain [Unknown]
  - Constipation [Unknown]
  - Diarrhoea [Unknown]
